FAERS Safety Report 19386968 (Version 1)
Quarter: 2021Q2

REPORT INFORMATION
  Report Type: Spontaneous
  Country: US (occurrence: US)
  Receive Date: 20210608
  Receipt Date: 20210608
  Transmission Date: 20210717
  Serious: Yes (Death, Other)
  Sender: FDA-Public Use
  Company Number: US-SA-2021SA188487

PATIENT
  Age: 81 Year
  Sex: Female

DRUGS (5)
  1. FLUOROURACIL. [Suspect]
     Active Substance: FLUOROURACIL
  2. CALCIUM FOLINATE [Suspect]
     Active Substance: LEUCOVORIN CALCIUM
  3. FLUOROURACIL SODIUM [Suspect]
     Active Substance: FLUOROURACIL SODIUM
  4. VANCOMYCIN [Suspect]
     Active Substance: VANCOMYCIN
  5. OXALIPLATIN. [Suspect]
     Active Substance: OXALIPLATIN

REACTIONS (4)
  - Mucosal inflammation [Unknown]
  - Colorectal cancer [Fatal]
  - Renal failure [Unknown]
  - Feeling abnormal [Unknown]
